FAERS Safety Report 4706027-4 (Version None)
Quarter: 2005Q2

REPORT INFORMATION
  Report Type: 
  Country: None (occurrence: None)
  Receive Date: 20050627
  Receipt Date: 20041014
  Transmission Date: 20051028
  Serious: Yes (Hospitalization)
  Sender: FDA-Public Use
  Company Number: US-JNJFOC-20040403795

PATIENT
  Age: 51 Year
  Sex: Male

DRUGS (2)
  1. DURAGESIC-100 [Suspect]
     Indication: PAIN
     Dosage: 75 UG/HR, 1 IN 72 HOUR, TRANSDERMAL
     Route: 062
     Dates: start: 20021001
  2. FLEXERIL [Concomitant]

REACTIONS (4)
  - CHEST PAIN [None]
  - CONFUSIONAL STATE [None]
  - HEADACHE [None]
  - HYPERHIDROSIS [None]
